FAERS Safety Report 5015116-9 (Version None)
Quarter: 2006Q2

REPORT INFORMATION
  Report Type: 
  Country: None (occurrence: None)
  Receive Date: 20060530
  Receipt Date: 20060515
  Transmission Date: 20061013
  Serious: No
  Sender: FDA-Public Use
  Company Number: DEU-2006-0001962

PATIENT
  Age: 65 Year
  Sex: Male

DRUGS (2)
  1. OXYGESIC (OXYCODONE HYDROCHLORIDE) PROLONGED-RELEASE TABLET [Suspect]
     Dates: start: 20060127, end: 20060426
  2. IBUPROFEN [Concomitant]

REACTIONS (3)
  - EYE PAIN [None]
  - PHOTOPHOBIA [None]
  - VISION BLURRED [None]
